FAERS Safety Report 5963715-X (Version None)
Quarter: 2008Q4

REPORT INFORMATION
  Report Type: 
  Country: None (occurrence: None)
  Receive Date: 20081121
  Receipt Date: 20081121
  Transmission Date: 20090506
  Serious: Yes (Hospitalization, Other)
  Sender: FDA-Public Use
  Company Number: None

PATIENT
  Age: 31 Year
  Sex: Female

DRUGS (1)
  1. OMNIPAQUE 140 [Suspect]
     Dosage: 120 ML IV
     Route: 042
     Dates: start: 20080824, end: 20080824

REACTIONS (3)
  - COUGH [None]
  - CRYING [None]
  - FEELING HOT [None]
